FAERS Safety Report 13603663 (Version 1)
Quarter: 2017Q2

REPORT INFORMATION
  Report Type: Report from Study
  Country: None (occurrence: US)
  Receive Date: 20170601
  Receipt Date: 20170601
  Transmission Date: 20170830
  Serious: Yes (Other)
  Sender: FDA-Public Use
  Company Number: US-ABBVIE-17K-163-1900762-00

PATIENT
  Sex: Female

DRUGS (1)
  1. HUMIRA [Suspect]
     Active Substance: ADALIMUMAB
     Indication: CROHN^S DISEASE
     Route: 058

REACTIONS (5)
  - Lumbar vertebral fracture [Recovering/Resolving]
  - Intestinal resection [Unknown]
  - Viral upper respiratory tract infection [Unknown]
  - Osteoporosis [Unknown]
  - Cough [Unknown]

NARRATIVE: CASE EVENT DATE: 2016
